FAERS Safety Report 11928361 (Version 4)
Quarter: 2016Q1

REPORT INFORMATION
  Report Type: Spontaneous
  Country: JP (occurrence: JP)
  Receive Date: 20160119
  Receipt Date: 20160229
  Transmission Date: 20160526
  Serious: Yes (Life-Threatening, Other)
  Sender: FDA-Public Use
  Company Number: JP-PFIZER INC-2016025858

PATIENT
  Age: 70 Year
  Sex: Male

DRUGS (7)
  1. SEIBULE [Suspect]
     Active Substance: MIGLITOL
     Indication: TYPE 2 DIABETES MELLITUS
     Dosage: 150 MG, DAILY
     Route: 048
     Dates: end: 20140625
  2. SUINY [Concomitant]
     Active Substance: ANAGLIPTIN
     Dosage: UNK
     Dates: start: 20130903, end: 20141010
  3. ALLOPURINOL. [Concomitant]
     Active Substance: ALLOPURINOL
     Dosage: UNK
  4. MEVALOTIN [Concomitant]
     Active Substance: PRAVASTATIN SODIUM
     Dosage: UNK
  5. UNISIA [Concomitant]
     Active Substance: AMLODIPINE BESYLATE\CANDESARTAN CILEXETIL
     Dosage: UNK
  6. OVULANZE TAIYO [Concomitant]
     Dosage: UNK
  7. SEIBULE [Suspect]
     Active Substance: MIGLITOL
     Dosage: 75 MG, DAILY
     Route: 048
     Dates: start: 20140626

REACTIONS (1)
  - Pancreatic carcinoma stage IV [Unknown]

NARRATIVE: CASE EVENT DATE: 2014
